FAERS Safety Report 24829220 (Version 1)
Quarter: 2025Q1

REPORT INFORMATION
  Report Type: Report from Study
  Country: DE (occurrence: DE)
  Receive Date: 20250110
  Receipt Date: 20250110
  Transmission Date: 20250409
  Serious: Yes (Hospitalization, Other)
  Sender: CELLTRION
  Company Number: DE-CELLTRION INC.-2023DE004726

PATIENT

DRUGS (7)
  1. ADALIMUMAB-AATY [Suspect]
     Active Substance: ADALIMUMAB-AATY
     Indication: Product used for unknown indication
     Dosage: 40 MG, Q2WEEKS
     Route: 058
     Dates: start: 20221130
  2. ADALIMUMAB-AATY [Suspect]
     Active Substance: ADALIMUMAB-AATY
     Dates: start: 202211, end: 202310
  3. KEVZARA [Concomitant]
     Active Substance: SARILUMAB
     Dates: start: 202310
  4. METHOTREXATE [Concomitant]
     Active Substance: METHOTREXATE
     Dates: start: 20160114, end: 20160712
  5. METHOTREXATE [Concomitant]
     Active Substance: METHOTREXATE
     Dates: start: 20170109, end: 20190119
  6. METHOTREXATE [Concomitant]
     Active Substance: METHOTREXATE
     Dates: start: 20190702, end: 20200127
  7. TOCILIZUMAB [Concomitant]
     Active Substance: TOCILIZUMAB
     Dates: start: 201601, end: 202211

REACTIONS (3)
  - Pancreatic neuroendocrine tumour [Unknown]
  - Pneumonia chlamydial [Recovered/Resolved]
  - Pyrexia [Recovered/Resolved]

NARRATIVE: CASE EVENT DATE: 20230121
